FAERS Safety Report 6282534-0 (Version None)
Quarter: 2009Q3

REPORT INFORMATION
  Report Type: 
  Country: None (occurrence: None)
  Receive Date: 20090724
  Receipt Date: 20090715
  Transmission Date: 20100115
  Serious: Yes (Other)
  Sender: FDA-Public Use
  Company Number: IN-AVENTIS-200916603GDDC

PATIENT
  Age: 39 Year
  Sex: Female
  Weight: 82 kg

DRUGS (5)
  1. ALLEGRA [Suspect]
     Route: 048
     Dates: start: 20090701, end: 20090702
  2. ALLEGRA [Suspect]
     Route: 048
     Dates: start: 20090701, end: 20090702
  3. CETZINE [Concomitant]
  4. CETZINE [Concomitant]
  5. CORDARONE [Concomitant]

REACTIONS (1)
  - VENTRICULAR TACHYCARDIA [None]
